FAERS Safety Report 20939146 (Version 10)
Quarter: 2022Q4

REPORT INFORMATION
  Report Type: Report from Study
  Country: US (occurrence: US)
  Receive Date: 20220609
  Receipt Date: 20221223
  Transmission Date: 20230113
  Serious: Yes (Hospitalization, Other)
  Sender: FDA-Public Use
  Company Number: US-BoehringerIngelheim-2022-BI-165849

PATIENT
  Age: 78 Year
  Sex: Female

DRUGS (3)
  1. OFEV [Suspect]
     Active Substance: NINTEDANIB
     Indication: Idiopathic pulmonary fibrosis
     Route: 048
     Dates: start: 20220407
  2. OFEV [Suspect]
     Active Substance: NINTEDANIB
     Indication: Interstitial lung disease
     Route: 048
     Dates: start: 20220701
  3. PREDNISONE [Concomitant]
     Active Substance: PREDNISONE
     Indication: Product used for unknown indication

REACTIONS (9)
  - Oxygen saturation decreased [Not Recovered/Not Resolved]
  - Idiopathic pulmonary fibrosis [Recovering/Resolving]
  - Weight decreased [Recovered/Resolved]
  - Alopecia [Not Recovered/Not Resolved]
  - Blood pressure increased [Recovered/Resolved]
  - White blood cell disorder [Unknown]
  - Headache [Recovered/Resolved]
  - Diarrhoea [Unknown]
  - Flatulence [Not Recovered/Not Resolved]

NARRATIVE: CASE EVENT DATE: 20221013
